FAERS Safety Report 4939212-7 (Version None)
Quarter: 2006Q1

REPORT INFORMATION
  Report Type: 
  Country: None (occurrence: None)
  Receive Date: 20060309
  Receipt Date: 20060309
  Transmission Date: 20060701
  Serious: Yes (Other)
  Sender: FDA-Public Use
  Company Number: None

PATIENT
  Sex: Female
  Weight: 59.4212 kg

DRUGS (6)
  1. LYRICA [Suspect]
     Indication: GRAND MAL CONVULSION
     Dosage: 225   BID   PO
     Route: 048
     Dates: start: 20051121, end: 20060308
  2. TOPAMAX [Concomitant]
  3. YASMIN [Concomitant]
  4. TEMAZEPAM [Concomitant]
  5. TUMS [Concomitant]
  6. ADVIL [Concomitant]

REACTIONS (3)
  - DYSTONIA [None]
  - MIDDLE INSOMNIA [None]
  - MUSCLE SPASMS [None]
